FAERS Safety Report 9728173 (Version 2)
Quarter: 2014Q1

REPORT INFORMATION
  Report Type: Spontaneous
  Country: US (occurrence: None)
  Receive Date: 20131202
  Receipt Date: 20140307
  Transmission Date: 20141002
  Serious: Yes (Hospitalization)
  Sender: FDA-Public Use
  Company Number: CIO13070434

PATIENT
  Sex: Female

DRUGS (2)
  1. DAYQUIL COLD + FLU RELIEF WITH PHENYLEPHRINE [Suspect]
     Dosage: 2 LIQCAPS, EVERY 4-6 HOURS
     Route: 048
     Dates: start: 20131113, end: 20131114
  2. NYQUIL COLD + FLU NIGHTTIME RELIEF [Suspect]
     Dosage: UNKNOWN, ORAL
     Route: 048

REACTIONS (2)
  - Headache [None]
  - Feeling abnormal [None]
